FAERS Safety Report 7007082-1 (Version None)
Quarter: 2010Q3

REPORT INFORMATION
  Report Type: 
  Country: None (occurrence: None)
  Receive Date: 20100922
  Receipt Date: 20100830
  Transmission Date: 20110219
  Serious: No
  Sender: FDA-Public Use
  Company Number: US-B.I. PHARMACEUTICALS,INC./RIDGEFIELD-2010-BP-09799BP

PATIENT
  Sex: Female

DRUGS (2)
  1. TWYNSTA [Suspect]
     Indication: HYPERTENSION
     Route: 048
     Dates: start: 20100701, end: 20100801
  2. TWYNSTA [Suspect]
     Route: 048
     Dates: start: 20100801

REACTIONS (2)
  - ARTHROPATHY [None]
  - BLOOD PRESSURE INCREASED [None]
